FAERS Safety Report 5701606-X (Version None)
Quarter: 2008Q2

REPORT INFORMATION
  Report Type: 
  Country: None (occurrence: None)
  Receive Date: 20080410
  Receipt Date: 20080410
  Transmission Date: 20081010
  Serious: Yes (Death, Life-Threatening, Hospitalization)
  Sender: FDA-Public Use
  Company Number: None

PATIENT
  Sex: Male
  Weight: 96.4 kg

DRUGS (2)
  1. HUMIRA [Suspect]
     Indication: CROHN'S DISEASE
     Dosage: 40 MG EVERY OTHER WEEK PRIOR TO ADM
  2. PREDNISONE [Suspect]
     Dosage: 7.5 MG DAILY PO
     Route: 048

REACTIONS (7)
  - IMMUNOSUPPRESSION [None]
  - INFLUENZA [None]
  - LISTERIA SEPSIS [None]
  - MENINGITIS LISTERIA [None]
  - MULTI-ORGAN FAILURE [None]
  - REFUSAL OF TREATMENT BY PATIENT [None]
  - UNRESPONSIVE TO STIMULI [None]
